FAERS Safety Report 4764289-1 (Version None)
Quarter: 2005Q3

REPORT INFORMATION
  Report Type: 
  Country: None (occurrence: None)
  Receive Date: 20050909
  Receipt Date: 20050113
  Transmission Date: 20060218
  Serious: Yes (Hospitalization)
  Sender: FDA-Public Use
  Company Number: JP-BOEHRINGER INGELHEIM PHARMACEUTICALS, INC.-2005-BP-00539NB

PATIENT
  Age: 64 Year
  Sex: Female

DRUGS (3)
  1. MICARDIS [Suspect]
     Indication: HYPERTENSION
     Route: 048
     Dates: start: 20030912, end: 20040727
  2. NORVASC [Concomitant]
     Route: 048
     Dates: start: 19980101
  3. MAINTATE [Concomitant]
     Route: 048
     Dates: start: 19980101

REACTIONS (3)
  - COLD SWEAT [None]
  - LOSS OF CONSCIOUSNESS [None]
  - PALLOR [None]
